FAERS Safety Report 23718570 (Version 2)
Quarter: 2024Q2

REPORT INFORMATION
  Report Type: Spontaneous
  Country: SA (occurrence: SA)
  Receive Date: 20240408
  Receipt Date: 20240416
  Transmission Date: 20240716
  Serious: Yes (Other)
  Sender: FDA-Public Use
  Company Number: SA-SUN PHARMACEUTICAL INDUSTRIES LTD-2024R1-440237

PATIENT
  Age: 38 Year
  Sex: Male

DRUGS (3)
  1. MODAFINIL [Suspect]
     Active Substance: MODAFINIL
     Indication: Attention deficit hyperactivity disorder
     Dosage: 36 MILLIGRAM
     Route: 065
  2. MODAFINIL [Suspect]
     Active Substance: MODAFINIL
     Dosage: 200 UNK
     Route: 048
  3. SYMBICORT [Concomitant]
     Active Substance: BUDESONIDE\FORMOTEROL FUMARATE DIHYDRATE
     Indication: Asthma
     Dosage: UNK UNK, BID

REACTIONS (4)
  - Eosinophilic pneumonia chronic [Recovering/Resolving]
  - Rash [Unknown]
  - Pruritus [Unknown]
  - Dyspnoea [Unknown]
